FAERS Safety Report 22214517 (Version 1)
Quarter: 2023Q2

REPORT INFORMATION
  Report Type: Report from Study
  Country: US (occurrence: US)
  Receive Date: 20230414
  Receipt Date: 20230414
  Transmission Date: 20230722
  Serious: No
  Sender: FDA-Public Use
  Company Number: US-002147023-NVSC2023US086335

PATIENT
  Sex: Male
  Weight: 91 kg

DRUGS (3)
  1. METHOTREXATE [Suspect]
     Active Substance: METHOTREXATE
     Indication: Psoriatic arthropathy
     Dosage: 2.5 MG, OTHER (5 TABS ORALLY ONCE A WEEK)
     Route: 048
  2. METHOTREXATE [Suspect]
     Active Substance: METHOTREXATE
     Dosage: 3 DOSAGE FORM, QW FOR TWO WEEKS
     Route: 065
  3. METHOTREXATE [Suspect]
     Active Substance: METHOTREXATE
     Dosage: 5 DOSAGE FORM, QW
     Route: 065

REACTIONS (8)
  - Dactylitis [Unknown]
  - Psoriasis [Unknown]
  - Skin lesion [Recovering/Resolving]
  - Peripheral swelling [Recovering/Resolving]
  - Influenza like illness [Unknown]
  - Pain [Recovering/Resolving]
  - Fatigue [Unknown]
  - Drug ineffective [Unknown]
